FAERS Safety Report 4273305-5 (Version None)
Quarter: 2004Q1

REPORT INFORMATION
  Report Type: 
  Country: None (occurrence: None)
  Receive Date: 20040114
  Receipt Date: 20040107
  Transmission Date: 20041129
  Serious: Yes (Life-Threatening, Hospitalization, Other)
  Sender: FDA-Public Use
  Company Number: 200312959GDS

PATIENT
  Age: 34 Year
  Sex: Male

DRUGS (6)
  1. MOXIFLOXACIN [Suspect]
     Indication: MENINGITIS
     Dosage: 400 MG, TOTAL DAILY, ORAL
     Route: 048
     Dates: start: 20030908, end: 20030911
  2. MOXIFLOXACIN [Suspect]
     Indication: OSTEOMYELITIS
     Dosage: 400 MG, TOTAL DAILY, ORAL
     Route: 048
     Dates: start: 20030908, end: 20030911
  3. MOXIFLOXACIN [Suspect]
     Indication: PNEUMONIA STREPTOCOCCAL
     Dosage: 400 MG, TOTAL DAILY, ORAL
     Route: 048
     Dates: start: 20030908, end: 20030911
  4. RIFAMPICIN [Concomitant]
  5. PANTOPRAZOLE [Concomitant]
  6. MAXOLON [Concomitant]

REACTIONS (3)
  - CIRCULATORY COLLAPSE [None]
  - ELECTROCARDIOGRAM QT CORRECTED INTERVAL PROLONGED [None]
  - NEUTROPENIA [None]
